FAERS Safety Report 9252366 (Version 1)
Quarter: 2013Q2

REPORT INFORMATION
  Report Type: Spontaneous
  Country: JP (occurrence: JP)
  Receive Date: 20130424
  Receipt Date: 20130424
  Transmission Date: 20140414
  Serious: No
  Sender: FDA-Public Use
  Company Number: JP-B.I. PHARMACEUTICALS,INC./RIDGEFIELD-2013-BI-10089NB

PATIENT
  Age: 55 Year
  Sex: Female

DRUGS (3)
  1. TRAZENTA [Suspect]
     Indication: DIABETES MELLITUS
     Dosage: 5 MG
     Route: 048
     Dates: start: 20130402, end: 20130409
  2. GASLON N_OD [Suspect]
     Indication: GASTRITIS
     Dosage: 4 MG
     Route: 048
     Dates: start: 20130402, end: 20130409
  3. UNKNOWNDRUG [Suspect]
     Indication: HYPERTENSION
     Route: 048
     Dates: start: 20130402, end: 20130409

REACTIONS (1)
  - Face oedema [Unknown]
